FAERS Safety Report 21245873 (Version 1)
Quarter: 2022Q3

REPORT INFORMATION
  Report Type: Report from Study
  Country: CO (occurrence: CO)
  Receive Date: 20220824
  Receipt Date: 20220824
  Transmission Date: 20221026
  Serious: Yes (Hospitalization)
  Sender: FDA-Public Use
  Company Number: CO-UNITED THERAPEUTICS-UNT-2022-017778

PATIENT

DRUGS (10)
  1. TREPROSTINIL SODIUM [Suspect]
     Active Substance: TREPROSTINIL SODIUM
     Indication: Pulmonary arterial hypertension
     Dosage: UNK, CONTINUING
     Route: 058
     Dates: start: 20201020
  2. TREPROSTINIL SODIUM [Suspect]
     Active Substance: TREPROSTINIL SODIUM
     Dosage: 0.079 ?G/KG, CONTINUING (AT AN INFUSION RATE OF 0.028 ML/HOURS)
     Route: 058
     Dates: end: 20220126
  3. AMBRISENTAN [Concomitant]
     Active Substance: AMBRISENTAN
     Indication: Product used for unknown indication
     Dosage: 10 MG, UNK
     Route: 065
     Dates: start: 20201027
  4. TADALAFIL [Concomitant]
     Active Substance: TADALAFIL
     Indication: Product used for unknown indication
     Dosage: 40 MG, UNK
     Route: 065
     Dates: start: 20201027
  5. DOLUTEGRAVIR [Concomitant]
     Active Substance: DOLUTEGRAVIR
     Indication: Product used for unknown indication
     Dosage: 50 MG, UNK
     Route: 065
     Dates: start: 20201215
  6. ABACAVIR\LAMIVUDINE [Concomitant]
     Active Substance: ABACAVIR\LAMIVUDINE
     Indication: Product used for unknown indication
     Dosage: 600/300 (UNK), UNK
     Route: 065
     Dates: start: 20201215
  7. TRAMADOL [Concomitant]
     Active Substance: TRAMADOL
     Indication: Product used for unknown indication
     Dosage: 50 MG, UNK
     Route: 065
     Dates: start: 20210611
  8. DESLORATADINE [Concomitant]
     Active Substance: DESLORATADINE
     Indication: Product used for unknown indication
     Dosage: 5 MG, UNK
     Route: 065
     Dates: start: 20210912
  9. BETAMETHASONE [Concomitant]
     Active Substance: BETAMETHASONE
     Indication: Product used for unknown indication
     Dosage: 0.05 %, UNK
     Route: 065
     Dates: start: 20210730
  10. CAPSAICIN [Concomitant]
     Active Substance: CAPSAICIN
     Indication: Product used for unknown indication
     Dosage: 1 %, UNK
     Route: 065
     Dates: start: 20210920

REACTIONS (3)
  - Drug intolerance [Unknown]
  - Pain [Unknown]
  - Skin lesion [Unknown]

NARRATIVE: CASE EVENT DATE: 20220117
